FAERS Safety Report 9475789 (Version 2)
Quarter: 2013Q4

REPORT INFORMATION
  Report Type: Spontaneous
  Country: US (occurrence: US)
  Receive Date: 20130826
  Receipt Date: 20131002
  Transmission Date: 20140711
  Serious: Yes (Other)
  Sender: FDA-Public Use
  Company Number: US-PFIZER INC-2013239746

PATIENT
  Age: 63 Year
  Sex: Male

DRUGS (2)
  1. BOSULIF [Suspect]
     Indication: CHRONIC MYELOID LEUKAEMIA
     Dosage: 400 MG, DAILY (100MG TABLET)
     Dates: start: 201307
  2. BOSULIF [Suspect]
     Dosage: UNK

REACTIONS (5)
  - Hypersensitivity [Unknown]
  - Diarrhoea [Unknown]
  - Vertigo [Recovered/Resolved]
  - Hypotension [Unknown]
  - Abdominal pain upper [Recovering/Resolving]
